FAERS Safety Report 26203976 (Version 1)
Quarter: 2025Q4

REPORT INFORMATION
  Report Type: Report from Study
  Country: JP (occurrence: JP)
  Receive Date: 20251226
  Receipt Date: 20251226
  Transmission Date: 20260117
  Serious: Yes (Disabling)
  Sender: EISAI
  Company Number: JP-Eisai-202500931_LEQ_P_1

PATIENT
  Age: 77 Year
  Sex: Female
  Weight: 57.0 kg

DRUGS (7)
  1. LEQEMBI [Suspect]
     Active Substance: LECANEMAB-IRMB
     Indication: Dementia
     Route: 041
     Dates: start: 20250418, end: 20250418
  2. LEQEMBI [Suspect]
     Active Substance: LECANEMAB-IRMB
     Route: 041
     Dates: start: 20250905, end: 20251003
  3. CILOSTAZOL [Concomitant]
     Active Substance: CILOSTAZOL
     Indication: Meniere^s disease
     Route: 048
  4. GALANTAMINE HYDROBROMIDE [Concomitant]
     Active Substance: GALANTAMINE HYDROBROMIDE
     Indication: Dementia Alzheimer^s type
     Route: 048
  5. ADETPHOS [Concomitant]
     Active Substance: ADENOSINE TRIPHOSPHATE
     Route: 048
  6. BETAHISTINE MESILATE [Concomitant]
     Active Substance: BETAHISTINE MESILATE
     Route: 048
  7. ISOSORBIDE [Concomitant]
     Active Substance: ISOSORBIDE
     Route: 048

REACTIONS (2)
  - Fibrin D dimer increased [Not Recovered/Not Resolved]
  - Thrombosis [Not Recovered/Not Resolved]

NARRATIVE: CASE EVENT DATE: 20250418
